FAERS Safety Report 25406101 (Version 1)
Quarter: 2025Q2

REPORT INFORMATION
  Report Type: Spontaneous
  Country: US (occurrence: US)
  Receive Date: 20250606
  Receipt Date: 20250606
  Transmission Date: 20250716
  Serious: Yes (Hospitalization, Other)
  Sender: INTERNATIONAL MEDICATION SYSTEM
  Company Number: US-International Medication Systems, Limited-2178163

PATIENT
  Age: 79 Year
  Sex: Male

DRUGS (21)
  1. MORPHINE SULFATE [Suspect]
     Active Substance: MORPHINE SULFATE
     Indication: Metabolic encephalopathy
     Dates: start: 20241015, end: 20241015
  2. TORSEMIDE [Concomitant]
     Active Substance: TORSEMIDE
     Dates: start: 20200821
  3. KEFLEX [Concomitant]
     Active Substance: CEPHALEXIN
     Dates: start: 20241010, end: 20241021
  4. MUPIROCIN [Concomitant]
     Active Substance: MUPIROCIN
  5. DUTASTERIDE [Concomitant]
     Active Substance: DUTASTERIDE
  6. BACLOFEN [Suspect]
     Active Substance: BACLOFEN
     Dates: start: 20241002, end: 20241014
  7. PHOSLO [Concomitant]
     Active Substance: CALCIUM ACETATE
     Dates: start: 20240814
  8. RENVELA [Concomitant]
     Active Substance: SEVELAMER CARBONATE
     Dates: start: 20240814
  9. VENLAFAXINE [Concomitant]
     Active Substance: VENLAFAXINE HYDROCHLORIDE
     Dates: start: 20230207, end: 20241014
  10. FLOMAX [Concomitant]
     Active Substance: TAMSULOSIN HYDROCHLORIDE
     Dates: start: 20230208
  11. FERROUS SULFATE [Concomitant]
     Active Substance: FERROUS SULFATE
     Dates: start: 20230525
  12. MIDODRINE [Concomitant]
     Active Substance: MIDODRINE
     Dates: start: 20230809
  13. SILVER SULFADIAZENE [Concomitant]
     Active Substance: SILVER SULFADIAZINE
     Dates: start: 20220111
  14. AMITRIPTYLINE [Concomitant]
     Active Substance: AMITRIPTYLINE
     Dates: start: 20211129
  15. PREGABALIN [Concomitant]
     Active Substance: PREGABALIN
     Dates: start: 20220124, end: 20241015
  16. ALLOPURINOL [Concomitant]
     Active Substance: ALLOPURINOL
     Dates: start: 20211015
  17. CHOLECALCIFEROL [Concomitant]
     Active Substance: CHOLECALCIFEROL
     Dates: start: 20210702
  18. CALCIUM CARBONATE\ERGOCALCIFEROL\RETINOL [Concomitant]
     Active Substance: CALCIUM CARBONATE\ERGOCALCIFEROL\RETINOL
     Dates: start: 20210702
  19. ELIQUIS [Concomitant]
     Active Substance: APIXABAN
     Dates: start: 20210511
  20. PROTONIX [Concomitant]
     Active Substance: PANTOPRAZOLE SODIUM
     Dates: start: 20180905
  21. CALCIUM CHLORIDE\DEXTROSE\MAGNESIUM CHLORIDE\SODIUM CHLORIDE\SODIUM LA [Concomitant]
     Active Substance: CALCIUM CHLORIDE\DEXTROSE\MAGNESIUM CHLORIDE\SODIUM CHLORIDE\SODIUM LACTATE
     Dates: start: 20210215

REACTIONS (4)
  - Metabolic encephalopathy [Recovered/Resolved with Sequelae]
  - Ventricular tachycardia [Unknown]
  - Hypotension [Unknown]
  - Fall [Unknown]

NARRATIVE: CASE EVENT DATE: 20241015
